FAERS Safety Report 5698069-X (Version None)
Quarter: 2008Q2

REPORT INFORMATION
  Report Type: 
  Country: None (occurrence: None)
  Receive Date: 20080408
  Receipt Date: 20080213
  Transmission Date: 20081010
  Serious: Yes (Other)
  Sender: FDA-Public Use
  Company Number: US-PURDUE-USA_2008_0032059

PATIENT
  Sex: Female

DRUGS (1)
  1. OXYCONTIN [Suspect]
     Indication: BACK PAIN
     Dosage: 60 MG, TID
     Route: 048
     Dates: start: 20000101, end: 20040101

REACTIONS (5)
  - ANOREXIA [None]
  - DRUG DEPENDENCE [None]
  - FEELING OF BODY TEMPERATURE CHANGE [None]
  - INSOMNIA [None]
  - SURGERY [None]
